FAERS Safety Report 8568120 (Version 8)
Quarter: 2013Q1

REPORT INFORMATION
  Report Type: Spontaneous
  Country: US (occurrence: US)
  Receive Date: 20120518
  Receipt Date: 20130103
  Transmission Date: 20140127
  Serious: No
  Sender: FDA-Public Use
  Company Number: US-PFIZER INC-2012118919

PATIENT
  Age: 73 Year
  Sex: Male
  Weight: 60.77 kg

DRUGS (10)
  1. SUTENT [Suspect]
     Indication: RENAL CANCER
     Dosage: 50 MG DAILY X28 DAYS Q 42 DAYS
     Dates: start: 20120510, end: 20120718
  2. SUTENT [Suspect]
     Indication: RENAL CELL CARCINOMA
     Dosage: 50 MG, 1X/DAY
     Route: 048
     Dates: start: 201205
  3. SUTENT [Suspect]
     Indication: RENAL CANCER
  4. COUMADIN [Concomitant]
     Dosage: UNK
     Dates: end: 20120420
  5. LOVENOX [Concomitant]
     Dosage: UNK
     Dates: start: 2012
  6. AMLODIPINE [Concomitant]
     Dosage: 10 MG, UNK
  7. METOPROLOL XL [Concomitant]
     Dosage: 50 MG, UNK
  8. ATORVASTATIN [Concomitant]
     Dosage: UNK
  9. LEVOTHYROXINE [Concomitant]
     Dosage: UNK
  10. EMETROL [Concomitant]
     Dosage: UNK

REACTIONS (15)
  - Chromaturia [Unknown]
  - Weight decreased [Recovering/Resolving]
  - Fatigue [Recovered/Resolved]
  - Decreased appetite [Unknown]
  - Hypothyroidism [Unknown]
  - Dyspepsia [Unknown]
  - Hiccups [Unknown]
  - Malaise [Unknown]
  - Lethargy [Unknown]
  - Pallor [Unknown]
  - Red blood cells urine [Unknown]
  - Haematuria [Unknown]
  - Weight decreased [Unknown]
  - Hiccups [Not Recovered/Not Resolved]
  - Insomnia [Unknown]
